FAERS Safety Report 6406828-0 (Version None)
Quarter: 2009Q4

REPORT INFORMATION
  Report Type: 
  Country: None (occurrence: None)
  Receive Date: 20091020
  Receipt Date: 20091012
  Transmission Date: 20100525
  Serious: Yes (Other)
  Sender: FDA-Public Use
  Company Number: GB-ASTRAZENECA-2009SE19653

PATIENT
  Age: 79 Year

DRUGS (12)
  1. SEROQUEL [Suspect]
     Indication: PSYCHOTIC DISORDER
     Dosage: 12.5 MG BID AND 25 MG NIGHT
     Route: 048
  2. SEROQUEL [Suspect]
     Route: 048
  3. OMEPRAZOLE [Concomitant]
  4. OKALDOPA [Concomitant]
  5. CO-CODAMOL [Concomitant]
  6. TAMAREX [Concomitant]
  7. EXELEON [Concomitant]
  8. CITALOPRAM HYDROBROMIDE [Concomitant]
  9. DIHYDROCODEINE BITARTRATE INJ [Concomitant]
  10. CALCICHEW [Concomitant]
  11. MELATONIN [Concomitant]
  12. BISACODYL [Concomitant]

REACTIONS (3)
  - CONFUSIONAL STATE [None]
  - MUSCLE RIGIDITY [None]
  - PARKINSON'S DISEASE [None]
